FAERS Safety Report 17347945 (Version 1)
Quarter: 2020Q1

REPORT INFORMATION
  Report Type: Spontaneous
  Country: US (occurrence: US)
  Receive Date: 20200130
  Receipt Date: 20200130
  Transmission Date: 20200409
  Serious: Yes (Hospitalization, Other)
  Sender: FDA-Public Use
  Company Number: US-HIKMA PHARMACEUTICALS USA INC.-US-H14001-20-00265

PATIENT
  Age: 84 Year
  Sex: Female

DRUGS (10)
  1. COUMADINE [Suspect]
     Active Substance: WARFARIN SODIUM
     Indication: PRODUCT USED FOR UNKNOWN INDICATION
     Route: 065
  2. DUONEB [Suspect]
     Active Substance: ALBUTEROL SULFATE\IPRATROPIUM BROMIDE
     Indication: PRODUCT USED FOR UNKNOWN INDICATION
     Route: 065
  3. VERAPAMIL [Suspect]
     Active Substance: VERAPAMIL HYDROCHLORIDE
     Indication: PRODUCT USED FOR UNKNOWN INDICATION
     Route: 065
  4. FLUCONAZOLE. [Suspect]
     Active Substance: FLUCONAZOLE
     Indication: CELLULITIS
  5. FLUCONAZOLE. [Suspect]
     Active Substance: FLUCONAZOLE
     Indication: INTERTRIGO
     Route: 048
  6. CEFAZOLIN [Suspect]
     Active Substance: CEFAZOLIN
  7. CEPHALEXIN. [Suspect]
     Active Substance: CEPHALEXIN
     Route: 065
  8. TOLNAFTATE. [Suspect]
     Active Substance: TOLNAFTATE
     Indication: INTERTRIGO
     Route: 065
  9. TOLNAFTATE. [Suspect]
     Active Substance: TOLNAFTATE
     Indication: CELLULITIS
  10. PROPRANOLOL [Suspect]
     Active Substance: PROPRANOLOL HYDROCHLORIDE
     Indication: PRODUCT USED FOR UNKNOWN INDICATION
     Route: 065

REACTIONS (6)
  - Sinus bradycardia [Unknown]
  - Acute kidney injury [Unknown]
  - Metabolic acidosis [Unknown]
  - Drug interaction [Unknown]
  - Atrioventricular block first degree [Unknown]
  - Hyperkalaemia [Unknown]
